FAERS Safety Report 13391999 (Version 1)
Quarter: 2017Q1

REPORT INFORMATION
  Report Type: Spontaneous
  Country: US (occurrence: US)
  Receive Date: 20170331
  Receipt Date: 20170331
  Transmission Date: 20170429
  Serious: No
  Sender: FDA-Public Use
  Company Number: US-PFIZER INC-2017135887

PATIENT
  Age: 54 Year
  Sex: Female
  Weight: 72.57 kg

DRUGS (8)
  1. TRAZODONE [Concomitant]
     Active Substance: TRAZODONE HYDROCHLORIDE
     Indication: SLEEP DISORDER
     Dosage: 50 MG, 1X/DAY (ONCE EACH NIGHT)
  2. XAQUIL XR [Concomitant]
     Indication: VITAMIN SUPPLEMENTATION
     Dosage: 30 MG, 1X/DAY
  3. PRISTIQ EXTENDED-RELEASE [Suspect]
     Active Substance: DESVENLAFAXINE SUCCINATE
     Indication: ANXIETY
     Dosage: 25 MG, 1X/DAY (AND STARTED TAKING IT EVERY OTHER DAY LAST WEEK)
     Dates: start: 2016
  4. WELLBUTRIN XL [Concomitant]
     Active Substance: BUPROPION HYDROCHLORIDE
     Indication: DEPRESSION
     Dosage: 150 MG, 1X/DAY
     Dates: start: 201607
  5. PRISTIQ EXTENDED-RELEASE [Suspect]
     Active Substance: DESVENLAFAXINE SUCCINATE
     Indication: DEPRESSION
  6. CLONAZEPAM. [Concomitant]
     Active Substance: CLONAZEPAM
     Indication: TENSION
  7. WELLBUTRIN XL [Concomitant]
     Active Substance: BUPROPION HYDROCHLORIDE
     Indication: ANXIETY
  8. CLONAZEPAM. [Concomitant]
     Active Substance: CLONAZEPAM
     Indication: MUSCLE SPASMS
     Dosage: 0.5 MG, (1-2 TABLETS EVERY NIGHT AT BEDTIME) AS NEEDED
     Route: 048

REACTIONS (12)
  - Chest discomfort [Unknown]
  - Back pain [Unknown]
  - Dizziness [Unknown]
  - Stress [Unknown]
  - Arthralgia [Unknown]
  - Pyrexia [Not Recovered/Not Resolved]
  - Dyspnoea [Unknown]
  - Withdrawal syndrome [Unknown]
  - Influenza [Recovered/Resolved]
  - Asthenia [Unknown]
  - Cough [Not Recovered/Not Resolved]
  - Intentional product misuse [Unknown]

NARRATIVE: CASE EVENT DATE: 201703
